FAERS Safety Report 6079708-0 (Version None)
Quarter: 2009Q1

REPORT INFORMATION
  Report Type: 
  Country: None (occurrence: None)
  Receive Date: 20090217
  Receipt Date: 20090211
  Transmission Date: 20090719
  Serious: Yes (Hospitalization)
  Sender: FDA-Public Use
  Company Number: FR-BRISTOL-MYERS SQUIBB COMPANY-14503593

PATIENT
  Age: 86 Year
  Sex: Female

DRUGS (12)
  1. COUMADIN [Suspect]
     Indication: CARDIAC FAILURE
     Dosage: 1 DOSAGE FORM = 1 TABLET.
     Route: 048
     Dates: end: 20080101
  2. ALDACTONE [Suspect]
     Indication: HYPERTENSION
     Dosage: ONE TABLET DAILY.
     Dates: end: 20081104
  3. CERIS [Suspect]
     Indication: MICTURITION URGENCY
     Dosage: ONE TABLET DAILY.
     Dates: end: 20081104
  4. STABLON [Suspect]
     Indication: DEPRESSION
     Route: 048
     Dates: end: 20081104
  5. TRIATEC [Suspect]
     Indication: HYPERTENSION
     Route: 048
     Dates: end: 20081104
  6. LYRICA [Suspect]
     Indication: PAIN
     Dosage: ONE CAPSULE DAILY.
     Dates: end: 20081104
  7. OXYCONTIN [Suspect]
     Indication: PAIN
     Dosage: OXYCONTIN LP.
     Route: 048
     Dates: end: 20081104
  8. LEVOTHYROX [Concomitant]
     Indication: HYPOTHYROIDISM
     Dosage: ONE TABLET DAILY.
  9. NEXIUM [Concomitant]
     Dosage: ONE TABLET.
     Route: 048
     Dates: end: 20081104
  10. LASILIX [Concomitant]
     Indication: OEDEMA PERIPHERAL
     Dosage: ONE TABLET DAILY.
     Route: 048
     Dates: end: 20081104
  11. BISOPROLOL FUMARATE [Concomitant]
     Indication: HYPERTENSION
     Dosage: ONE TABLET DAILY.
     Route: 048
  12. CORTANCYL [Concomitant]
     Indication: B-CELL LYMPHOMA
     Route: 048

REACTIONS (2)
  - CHOLESTASIS [None]
  - CYTOLYTIC HEPATITIS [None]
